FAERS Safety Report 9119982 (Version 3)
Quarter: 2015Q2

REPORT INFORMATION
  Report Type: Spontaneous
  Country: US (occurrence: US)
  Receive Date: 20130226
  Receipt Date: 20150422
  Transmission Date: 20150821
  Serious: Yes (Other)
  Sender: FDA-Public Use
  Company Number: US-BAYER-2013-022010

PATIENT
  Age: 22 Year
  Sex: Female

DRUGS (1)
  1. MIRENA [Suspect]
     Active Substance: LEVONORGESTREL
     Indication: CONTRACEPTION
     Dosage: 20 MCG/24HR, CONT
     Route: 015
     Dates: end: 2009

REACTIONS (13)
  - Post-traumatic stress disorder [None]
  - Depression [None]
  - Anxiety [None]
  - Injury [None]
  - Anhedonia [None]
  - Pain [None]
  - Ovarian cyst [None]
  - Infertility female [None]
  - Device dislocation [None]
  - Bipolar disorder [None]
  - Genital haemorrhage [None]
  - Emotional distress [None]
  - General physical health deterioration [None]
